FAERS Safety Report 22965846 (Version 4)
Quarter: 2023Q4

REPORT INFORMATION
  Report Type: Report from Study
  Country: BR (occurrence: BR)
  Receive Date: 20230921
  Receipt Date: 20231111
  Transmission Date: 20240109
  Serious: Yes (Death, Hospitalization, Other)
  Sender: FDA-Public Use
  Company Number: BR-PFIZER INC-PV202300155913

PATIENT
  Age: 75 Year
  Sex: Female
  Weight: 61 kg

DRUGS (2)
  1. XELJANZ [Suspect]
     Active Substance: TOFACITINIB CITRATE
     Indication: Rheumatoid arthritis
     Dosage: 5 MG, TWICE A DAY
     Route: 048
     Dates: start: 20160530, end: 20230723
  2. METHOTREXATE SODIUM [Suspect]
     Active Substance: METHOTREXATE SODIUM
     Indication: Rheumatoid arthritis
     Dosage: 15 MG, WEEKLY, 6 TABLETS
     Route: 048
     Dates: start: 20180612, end: 20230715

REACTIONS (11)
  - Bronchopulmonary aspergillosis [Fatal]
  - Respiratory failure [Fatal]
  - Cardiac arrest [Fatal]
  - Renal failure [Fatal]
  - Septic shock [Fatal]
  - Chest pain [Unknown]
  - Dyspnoea [Unknown]
  - Hypoxia [Unknown]
  - Hyperkalaemia [Unknown]
  - Hypervolaemia [Unknown]
  - Haemodynamic instability [Unknown]

NARRATIVE: CASE EVENT DATE: 20230709
